FAERS Safety Report 24215231 (Version 1)
Quarter: 2024Q3

REPORT INFORMATION
  Report Type: Spontaneous
  Country: SA (occurrence: SA)
  Receive Date: 20240816
  Receipt Date: 20240816
  Transmission Date: 20241017
  Serious: Yes (Death, Hospitalization)
  Sender: STRIDES
  Company Number: SA-STRIDES ARCOLAB LIMITED-2024SP010029

PATIENT
  Age: 2 Month
  Sex: Female

DRUGS (2)
  1. VALGANCICLOVIR HYDROCHLORIDE [Suspect]
     Active Substance: VALGANCICLOVIR HYDROCHLORIDE
     Indication: Cytomegalovirus infection
     Dosage: 30 MILLIGRAM/KILOGRAM, QD
     Route: 065
  2. GANCICLOVIR [Suspect]
     Active Substance: GANCICLOVIR
     Indication: Cytomegalovirus infection
     Dosage: 15 MILLIGRAM/KILOGRAM, QD
     Route: 042

REACTIONS (2)
  - Drug ineffective [Fatal]
  - Infection [Fatal]
